FAERS Safety Report 24603591 (Version 1)
Quarter: 2024Q4

REPORT INFORMATION
  Report Type: Spontaneous
  Country: TH (occurrence: TH)
  Receive Date: 20241111
  Receipt Date: 20241111
  Transmission Date: 20250115
  Serious: Yes (Hospitalization, Other)
  Sender: MERCK
  Company Number: TH-009507513-2411THA003248

PATIENT
  Age: 70 Year
  Sex: Male

DRUGS (5)
  1. KEYTRUDA [Suspect]
     Active Substance: PEMBROLIZUMAB
     Indication: Transitional cell carcinoma
     Dosage: 200 MG, Q 3 WEEKS ON D1
     Dates: start: 20231114
  2. KEYTRUDA [Suspect]
     Active Substance: PEMBROLIZUMAB
     Dosage: 200 MG, Q 3 WEEKS ON D1
     Dates: start: 20240529
  3. KEYTRUDA [Suspect]
     Active Substance: PEMBROLIZUMAB
     Dosage: 200 MG, Q 3 WEEKS ON D1
     Dates: start: 20240914
  4. ENFORTUMAB VEDOTIN [Suspect]
     Active Substance: ENFORTUMAB VEDOTIN
     Indication: Transitional cell carcinoma
     Dosage: 1.25 MG/KG ON D1, D8 OF Q3W
     Dates: start: 20231114
  5. ENFORTUMAB VEDOTIN [Suspect]
     Active Substance: ENFORTUMAB VEDOTIN
     Dosage: 1.25 MG/KG ON D1, D8 OF Q3W
     Dates: start: 20240529

REACTIONS (6)
  - Urinary tract infection enterococcal [Unknown]
  - Nephrostomy [Unknown]
  - Neuropathy peripheral [Unknown]
  - Follicular eczema [Recovering/Resolving]
  - Hyperglycaemia [Unknown]
  - Rash [Unknown]

NARRATIVE: CASE EVENT DATE: 20231128
